FAERS Safety Report 9769215 (Version 1)
Quarter: 2013Q3

REPORT INFORMATION
  Report Type: Spontaneous
  Country: US (occurrence: None)
  Receive Date: 20130904
  Receipt Date: 20130904
  Transmission Date: 20140515
  Serious: Yes (Death)
  Sender: FDA-Public Use
  Company Number: 1713747-2013-99944

PATIENT
  Age: 59 Year
  Sex: Male
  Weight: 75.3 kg

DRUGS (5)
  1. 0.9% SODIUM CHLORIDE INJECTION, USP IN MINI-BAG PLUS CONTAINER [Suspect]
     Indication: FLUID REPLACEMENT
     Dates: start: 20100422
  2. GRANUFLO/NATURALYTE [Concomitant]
  3. FRESENIUS 2008K [Concomitant]
  4. OPTIFLUX 180NRE [Concomitant]
  5. FRESENIUS COMBISET 2008 [Concomitant]

REACTIONS (3)
  - Cardio-respiratory arrest [None]
  - Loss of consciousness [None]
  - Ventricular fibrillation [None]
